FAERS Safety Report 8398035-X (Version None)
Quarter: 2012Q1

REPORT INFORMATION
  Report Type: 
  Country: None (occurrence: None)
  Receive Date: 20120323
  Receipt Date: 20110114
  Transmission Date: 20120608
  Serious: Yes (Other)
  Sender: FDA-Public Use
  Company Number: 163-21880-11011506

PATIENT
  Age: 86 Year
  Weight: 95.7 kg

DRUGS (7)
  1. FLOMAX [Concomitant]
  2. DIOVAN [Concomitant]
  3. LASIX [Concomitant]
  4. LIPITOR [Concomitant]
  5. REVLIMID [Suspect]
     Indication: MYELODYSPLASTIC SYNDROME
     Dosage: 5 MG, 1 IN 1 D, PO
     Route: 048
     Dates: start: 20091211
  6. CELEBREX [Concomitant]
  7. OXYBUTYNIN [Concomitant]

REACTIONS (1)
  - PLATELET COUNT DECREASED [None]
